FAERS Safety Report 4331208-1 (Version None)
Quarter: 2004Q1

REPORT INFORMATION
  Report Type: 
  Country: None (occurrence: None)
  Receive Date: 20040329
  Receipt Date: 20040317
  Transmission Date: 20041129
  Serious: Yes (Death, Hospitalization, Other)
  Sender: FDA-Public Use
  Company Number: 2003006683

PATIENT
  Age: 65 Year
  Sex: Female
  Weight: 90.7194 kg

DRUGS (11)
  1. LIPITOR [Suspect]
     Indication: HYPERLIPIDAEMIA
     Dosage: 10 MG (DAILY), ORAL
     Route: 048
     Dates: start: 20020303, end: 20030207
  2. WARFARIN SODIUM [Concomitant]
  3. OXYGEN (OXYGEN) [Concomitant]
  4. BUMETANIDE [Concomitant]
  5. CALCIUM CARBONATE (CALCIUM CARBONATE) [Concomitant]
  6. HYDROCHLOROTHIAZIDE [Concomitant]
  7. POTASSIUM CHLORIDE [Concomitant]
  8. LANSOPRAZOLE [Concomitant]
  9. SPIRONOLACTONE [Concomitant]
  10. ACETAMINOPHEN [Concomitant]
  11. CERTAGEN (FOLIC ACID, FERROUS FUMARATE, VITAMINS NOS, MINERALS NOS) [Concomitant]

REACTIONS (5)
  - ADENOCARCINOMA [None]
  - ASTHENIA [None]
  - HEPATIC NEOPLASM MALIGNANT [None]
  - METASTASES TO LIVER [None]
  - PAIN [None]
